FAERS Safety Report 10986975 (Version 1)
Quarter: 2015Q1

REPORT INFORMATION
  Report Type: Spontaneous
  Country: US (occurrence: None)
  Receive Date: 20150304
  Receipt Date: 20150304
  Transmission Date: 20150721
  Serious: Yes (Other)
  Sender: FDA-Public Use
  Company Number: 2014TJP016816

PATIENT
  Age: 64 Year
  Sex: Female
  Weight: 91 kg

DRUGS (12)
  1. GABAPENTIN. [Concomitant]
     Active Substance: GABAPENTIN
  2. METOPROLOL TARTRATE. [Concomitant]
     Active Substance: METOPROLOL TARTRATE
  3. PROAIR HFA (FLUTICASONE PROPIONATE) [Concomitant]
  4. POTASSIUM CHLORIDE. [Concomitant]
     Active Substance: POTASSIUM CHLORIDE
  5. METFORMIN HCL (METFORMIN HYDROCHLORIDE) [Concomitant]
  6. PRAVACHOL (PRAVASTATIN SODIUM) [Concomitant]
  7. PREVACID [Suspect]
     Active Substance: LANSOPRAZOLE
     Indication: GASTROOESOPHAGEAL REFLUX DISEASE
     Route: 048
     Dates: start: 20120208
  8. LOSARTAN POTASSIUM. [Concomitant]
     Active Substance: LOSARTAN POTASSIUM
  9. FUROSEMIDE. [Concomitant]
     Active Substance: FUROSEMIDE
  10. ACYCLOVIR (ACICLOVIR) [Concomitant]
  11. CIPRO [Concomitant]
     Active Substance: CIPROFLOXACIN HYDROCHLORIDE
  12. FLAGYL (METRONIDAZOLE) [Concomitant]

REACTIONS (10)
  - Gait disturbance [None]
  - Abdominal pain lower [None]
  - Drug ineffective [None]
  - Musculoskeletal discomfort [None]
  - Memory impairment [None]
  - Oedema [None]
  - Diarrhoea [None]
  - Diverticulitis [None]
  - Gastroenteritis viral [None]
  - Musculoskeletal chest pain [None]
